FAERS Safety Report 6599861-X (Version None)
Quarter: 2010Q1

REPORT INFORMATION
  Report Type: 
  Country: None (occurrence: None)
  Receive Date: 20100224
  Receipt Date: 20100219
  Transmission Date: 20100710
  Serious: No
  Sender: FDA-Public Use
  Company Number: GB-EISAI INC.-E2090-00976-SPO-GB

PATIENT
  Age: 27 Year
  Sex: Female
  Weight: 54 kg

DRUGS (6)
  1. ZONEGRAN [Suspect]
     Indication: EPILEPSY
     Route: 048
     Dates: start: 20091101, end: 20091101
  2. ZONEGRAN [Suspect]
     Route: 048
     Dates: start: 20091101, end: 20100205
  3. ZONEGRAN [Suspect]
     Route: 048
     Dates: start: 20100206
  4. KEPPRA [Suspect]
     Indication: EPILEPSY
     Route: 048
     Dates: start: 20060101
  5. CARBAMAZEPINE [Suspect]
     Indication: EPILEPSY
     Route: 048
     Dates: start: 20050101
  6. CLOBAZAM [Suspect]
     Indication: EPILEPSY
     Route: 048
     Dates: start: 20080101

REACTIONS (6)
  - APHASIA [None]
  - COGNITIVE DISORDER [None]
  - DEPRESSED MOOD [None]
  - DRUG INTERACTION [None]
  - FATIGUE [None]
  - LETHARGY [None]
